FAERS Safety Report 18937559 (Version 5)
Quarter: 2024Q2

REPORT INFORMATION
  Report Type: Spontaneous
  Country: FR (occurrence: FR)
  Receive Date: 20210225
  Receipt Date: 20240408
  Transmission Date: 20240715
  Serious: Yes (Other)
  Sender: FDA-Public Use
  Company Number: None

PATIENT
  Age: 71 Year
  Sex: Female
  Weight: 45 kg

DRUGS (17)
  1. ATOVAQUONE [Suspect]
     Active Substance: ATOVAQUONE
     Indication: Antifungal prophylaxis
     Dosage: 750 MG/5ML, ORAL SUSPENSION IN SACHET-DOSE, STRENGTH: 150 MG/ML
     Route: 048
  2. ATOVAQUONE [Suspect]
     Active Substance: ATOVAQUONE
     Indication: Antifungal prophylaxis
     Route: 048
  3. CYCLOPHOSPHAMIDE [Suspect]
     Active Substance: CYCLOPHOSPHAMIDE
     Indication: B-cell lymphoma
     Route: 042
     Dates: start: 20201211, end: 20210515
  4. VALACYCLOVIR HYDROCHLORIDE [Suspect]
     Active Substance: VALACYCLOVIR HYDROCHLORIDE
     Indication: Antiviral prophylaxis
     Route: 048
  5. FILGRASTIM [Suspect]
     Active Substance: FILGRASTIM
     Indication: Product used for unknown indication
     Route: 058
     Dates: start: 20201216
  6. RITUXIMAB [Suspect]
     Active Substance: RITUXIMAB
     Indication: Primary mediastinal large B-cell lymphoma
     Route: 041
     Dates: start: 20201214, end: 20210515
  7. VINCRISTINE SULFATE [Suspect]
     Active Substance: VINCRISTINE SULFATE
     Indication: B-cell lymphoma
     Route: 042
     Dates: start: 20201211, end: 20210515
  8. METHYLPREDNISOLONE [Suspect]
     Active Substance: METHYLPREDNISOLONE
     Indication: B-cell lymphoma
     Route: 037
     Dates: start: 20201216, end: 20201216
  9. DOXORUBICIN [Suspect]
     Active Substance: DOXORUBICIN
     Indication: B-cell lymphoma
     Route: 042
     Dates: start: 20201216, end: 20210515
  10. ALLOPURINOL [Suspect]
     Active Substance: ALLOPURINOL
     Indication: Gout
     Route: 048
     Dates: start: 20201203
  11. METHOTREXATE [Suspect]
     Active Substance: METHOTREXATE
     Indication: B-cell lymphoma
     Route: 037
     Dates: start: 20201216, end: 20201216
  12. METHOTREXATE [Suspect]
     Active Substance: METHOTREXATE
     Indication: B-cell lymphoma
     Route: 042
     Dates: start: 20210106, end: 20210515
  13. ERYTHROPOIETIN [Suspect]
     Active Substance: ERYTHROPOIETIN
     Indication: Anaemia
     Dosage: 30,000 IU / 0.75 ML SOLUTION FOR INJECTION IN PRE-FILLED SYRINGE
     Route: 058
     Dates: start: 20201218
  14. PREDNISOLONE [Suspect]
     Active Substance: PREDNISOLONE
     Indication: B-cell lymphoma
     Route: 048
     Dates: start: 20201211, end: 20210515
  15. AMITRIPTYLINE HYDROCHLORIDE [Suspect]
     Active Substance: AMITRIPTYLINE HYDROCHLORIDE
     Indication: Occipital neuralgia
     Dosage: 10 DROP, QD, 40 MG / ML, ORAL SOLUTION LAROXYL 40 MG/ML, SOLUTIONBUVABLE
     Route: 048
  16. CYTARABINE [Suspect]
     Active Substance: CYTARABINE
     Indication: B-cell lymphoma
     Route: 037
     Dates: start: 20201216, end: 20201216
  17. ONDANSETRON [Suspect]
     Active Substance: ONDANSETRON
     Indication: Nausea
     Route: 048
     Dates: start: 20201211

REACTIONS (1)
  - Cerebellar stroke [Not Recovered/Not Resolved]

NARRATIVE: CASE EVENT DATE: 20210127
